FAERS Safety Report 4674277-1 (Version None)
Quarter: 2005Q2

REPORT INFORMATION
  Report Type: 
  Country: None (occurrence: None)
  Receive Date: 20050524
  Receipt Date: 20050516
  Transmission Date: 20051028
  Serious: Yes (Disabling, Other)
  Sender: FDA-Public Use
  Company Number: 2005045330

PATIENT
  Age: 55 Year
  Sex: Female
  Weight: 81.6475 kg

DRUGS (10)
  1. LIPITOR [Suspect]
     Indication: HYPERLIPIDAEMIA
     Dosage: 10 MG (10 MG, 1 IN 1 D), ORAL
     Route: 048
     Dates: start: 20041001, end: 20050314
  2. DILTIAZEM [Concomitant]
  3. LISINOPRIL [Concomitant]
  4. METFORM (METFORMIN) [Concomitant]
  5. CONJUGATED ESTROGENS [Concomitant]
  6. OMEPRAZOLE [Concomitant]
  7. ASPIRIN [Concomitant]
  8. CALCIUM (CALCIUM) [Concomitant]
  9. MULTIVITAMINS 9ASCORBIC ACID, ERGOCALCIFEROL, FOLIC ACID, NICOTINAMIDE [Concomitant]
  10. SERTRALINE HCL [Concomitant]

REACTIONS (6)
  - AMNESIA [None]
  - COMMUNICATION DISORDER [None]
  - CONVULSION [None]
  - DEPRESSION [None]
  - DIZZINESS [None]
  - IMPAIRED WORK ABILITY [None]
